FAERS Safety Report 5392723-5 (Version None)
Quarter: 2007Q3

REPORT INFORMATION
  Report Type: 
  Country: None (occurrence: None)
  Receive Date: 20070720
  Receipt Date: 20070710
  Transmission Date: 20080115
  Serious: Yes (Other)
  Sender: FDA-Public Use
  Company Number: BR-PFIZER INC-2007045705

PATIENT
  Sex: Female
  Weight: 50 kg

DRUGS (1)
  1. DOSTINEX [Suspect]
     Indication: SUPPRESSED LACTATION
     Route: 048
     Dates: start: 20070531, end: 20070531

REACTIONS (4)
  - BREAST ENGORGEMENT [None]
  - BREAST PAIN [None]
  - DRUG INEFFECTIVE [None]
  - MOVEMENT DISORDER [None]
